FAERS Safety Report 9630740 (Version 1)
Quarter: 2013Q4

REPORT INFORMATION
  Report Type: Spontaneous
  Country: CA (occurrence: CA)
  Receive Date: 20131018
  Receipt Date: 20131018
  Transmission Date: 20140711
  Serious: Yes (Other)
  Sender: FDA-Public Use
  Company Number: CA-ASTRAZENECA-2013SE75054

PATIENT
  Age: 67 Year
  Sex: Male

DRUGS (9)
  1. BRILINTA [Suspect]
     Route: 048
     Dates: start: 20131005
  2. QUININE [Concomitant]
  3. BISOPROLOL [Concomitant]
  4. AMLODIPINE [Concomitant]
  5. AMOXICILLIN [Concomitant]
  6. DIOVAN [Concomitant]
  7. INSULIN [Concomitant]
  8. FERSOLATE [Concomitant]
  9. JAMP ASA EC [Concomitant]

REACTIONS (3)
  - Gait disturbance [Unknown]
  - Rash [Unknown]
  - Rash pruritic [Unknown]
